FAERS Safety Report 21250791 (Version 2)
Quarter: 2022Q3

REPORT INFORMATION
  Report Type: Report from Study
  Country: US (occurrence: US)
  Receive Date: 20220824
  Receipt Date: 20220901
  Transmission Date: 20221026
  Serious: Yes (Hospitalization, Other)
  Sender: FDA-Public Use
  Company Number: US-GILEAD-2022-0575672

PATIENT
  Age: 66 Year
  Sex: Male

DRUGS (6)
  1. SACITUZUMAB GOVITECAN [Suspect]
     Active Substance: SACITUZUMAB GOVITECAN
     Indication: Transitional cell carcinoma metastatic
     Dosage: 8 MG/KG, 7 DOSES, MOST RECENT 23-FEB-2022
     Route: 065
     Dates: end: 20220223
  2. SACITUZUMAB GOVITECAN [Suspect]
     Active Substance: SACITUZUMAB GOVITECAN
     Dosage: UNK
     Route: 065
     Dates: start: 20220323
  3. NIVOLUMAB [Suspect]
     Active Substance: NIVOLUMAB
     Indication: Transitional cell carcinoma metastatic
     Dosage: 4 DOSES MOST RECENT ON 01-FEB-2022
     Route: 065
     Dates: start: 20211105, end: 20211220
  4. IPILIMUMAB [Suspect]
     Active Substance: IPILIMUMAB
     Indication: Transitional cell carcinoma metastatic
     Dosage: 3 DOSES, MOST RECENT DOSE 20-DEC-2021
     Route: 065
     Dates: start: 20211105, end: 20211220
  5. PREDNISONE [Concomitant]
     Active Substance: PREDNISONE
     Indication: Pain
     Dosage: UNK
  6. OXYCODONE [Concomitant]
     Active Substance: OXYCODONE
     Indication: Pain
     Dosage: 5 MG Q6H PRN

REACTIONS (5)
  - Myositis [Unknown]
  - Arthralgia [Recovered/Resolved]
  - Arthralgia [Recovered/Resolved]
  - Hypergammaglobulinaemia benign monoclonal [Unknown]
  - Sepsis [Unknown]

NARRATIVE: CASE EVENT DATE: 20220303
